FAERS Safety Report 5444591-0 (Version None)
Quarter: 2007Q3

REPORT INFORMATION
  Report Type: 
  Country: None (occurrence: None)
  Receive Date: 20070831
  Receipt Date: 20070823
  Transmission Date: 20080115
  Serious: Yes (Hospitalization)
  Sender: FDA-Public Use
  Company Number: 2007-03927

PATIENT
  Age: 76 Year
  Sex: Female

DRUGS (5)
  1. FLUOROURACIL [Suspect]
     Indication: RECTAL CANCER
     Dosage: 800 MG/M2, Q2WEEKS, INTRAVENOUS
     Route: 042
  2. OXALIPLATIN [Suspect]
     Indication: RECTAL CANCER
     Dosage: 100 MG/M2, DAY 1
  3. RALTITREXED(RALTITREXED) [Suspect]
     Indication: RECTAL CANCER
     Dosage: 2.5 MG/M2, DAY 1
  4. FOLINIC ACID(FOLINIC ACID) [Suspect]
     Indication: RECTAL CANCER
     Dosage: 250 MG/M2, DAY 2, INTRAVENOUS
     Route: 042
  5. RADIOTHERAPY() [Suspect]
     Indication: RECTAL CANCER

REACTIONS (4)
  - DRUG TOXICITY [None]
  - METASTASES TO SALIVARY GLAND [None]
  - METASTASES TO SKIN [None]
  - RECTAL CANCER METASTATIC [None]
